FAERS Safety Report 7682753-2 (Version None)
Quarter: 2011Q3

REPORT INFORMATION
  Report Type: 
  Country: None (occurrence: None)
  Receive Date: 20110812
  Receipt Date: 20110812
  Transmission Date: 20111222
  Serious: Yes (Hospitalization)
  Sender: FDA-Public Use
  Company Number: None

PATIENT
  Age: 62 Year
  Sex: Male
  Weight: 69.4 kg

DRUGS (2)
  1. DIVALPROEX SODIUM [Suspect]
     Indication: MANIA
     Dosage: 2000 MG EVERY DAY PO
     Route: 048
     Dates: start: 20101108, end: 20110606
  2. DIVALPROEX SODIUM [Suspect]
     Indication: BIPOLAR DISORDER
     Dosage: 2000 MG EVERY DAY PO
     Route: 048
     Dates: start: 20101108, end: 20110606

REACTIONS (1)
  - PANCREATITIS [None]
